FAERS Safety Report 12123955 (Version 1)
Quarter: 2016Q1

REPORT INFORMATION
  Report Type: Spontaneous
  Country: US (occurrence: None)
  Receive Date: 20160226
  Receipt Date: 20160226
  Transmission Date: 20160526
  Serious: Yes (Life-Threatening)
  Sender: FDA-Public Use
  Company Number: None

PATIENT
  Age: 61 Year
  Sex: Female
  Weight: 81.65 kg

DRUGS (7)
  1. VITAMIN D3 [Concomitant]
     Active Substance: CHOLECALCIFEROL
  2. ALLEGRA [Concomitant]
     Active Substance: FEXOFENADINE HYDROCHLORIDE
  3. PROBIOTIC [Concomitant]
     Active Substance: PROBIOTICS NOS
  4. VITAMIN B [Concomitant]
     Active Substance: VITAMIN B
  5. BACON AT CRACKER BARREL [Suspect]
     Active Substance: PORK
  6. SYNTHROID [Suspect]
     Active Substance: LEVOTHYROXINE SODIUM
     Indication: THYROID DISORDER
     Dosage: 1 PILL DAILY ONCE DAILY
     Dates: start: 20141230, end: 20151130
  7. HCTZ [Concomitant]
     Active Substance: HYDROCHLOROTHIAZIDE

REACTIONS (2)
  - Anaphylactic reaction [None]
  - Food allergy [None]
